FAERS Safety Report 4391474-3 (Version None)
Quarter: 2004Q3

REPORT INFORMATION
  Report Type: 
  Country: None (occurrence: None)
  Receive Date: 20040701
  Receipt Date: 20040618
  Transmission Date: 20050211
  Serious: Yes (Hospitalization)
  Sender: FDA-Public Use
  Company Number: 04P-163-0264529-00

PATIENT
  Age: 76 Year
  Sex: Female
  Weight: 145 kg

DRUGS (10)
  1. DILAUDID [Suspect]
     Indication: POST PROCEDURAL PAIN
     Dosage: AS REQUIRED
     Dates: start: 20040113
  2. OXYCODONE HCL [Concomitant]
     Indication: ARTHRALGIA
     Dosage: 20 MG, 1 IN 12 HR, PER ORAL
     Route: 048
     Dates: start: 20040113, end: 20040113
  3. OXYCODONE HCL [Concomitant]
     Indication: POST PROCEDURAL PAIN
     Dosage: 20 MG, 1 IN 12 HR, PER ORAL
     Route: 048
     Dates: start: 20040113, end: 20040113
  4. OXYCOCET [Suspect]
     Indication: ARTHRALGIA
     Dosage: 4 IN 1 D, PER ORAL
     Route: 048
     Dates: start: 20040113, end: 20040113
  5. OXYCOCET [Suspect]
     Indication: POST PROCEDURAL PAIN
     Dosage: 4 IN 1 D, PER ORAL
     Route: 048
     Dates: start: 20040113, end: 20040113
  6. PROMETHAZINE [Suspect]
     Indication: NAUSEA
     Dates: start: 20040113, end: 20040113
  7. LEVOTHYROXINE SODIUM [Concomitant]
  8. WARFARIN SODIUM [Concomitant]
  9. FUROSEMIDE [Concomitant]
  10. VALSARTAN [Concomitant]

REACTIONS (12)
  - AGGRESSION [None]
  - AGITATION [None]
  - BRAIN DAMAGE [None]
  - BURNING SENSATION [None]
  - CONTUSION [None]
  - HYPOAESTHESIA [None]
  - MEMORY IMPAIRMENT [None]
  - OEDEMA PERIPHERAL [None]
  - PAIN IN EXTREMITY [None]
  - PARANOIA [None]
  - PNEUMONIA [None]
  - REFUSAL OF TREATMENT BY PATIENT [None]
